FAERS Safety Report 10469342 (Version 2)
Quarter: 2015Q1

REPORT INFORMATION
  Report Type: Report from Study
  Country: BR (occurrence: BR)
  Receive Date: 20140923
  Receipt Date: 20150121
  Transmission Date: 20150720
  Serious: Yes (Death, Life-Threatening, Hospitalization, Disabling, Other)
  Sender: FDA-Public Use
  Company Number: PHHY2014BR123217

PATIENT
  Age: 94 Year
  Sex: Female
  Weight: 65 kg

DRUGS (4)
  1. AMLODIPINE [Concomitant]
     Active Substance: AMLODIPINE BESYLATE
     Indication: HYPERTENSION
     Dosage: 1 DF, DAILY
     Route: 065
     Dates: start: 2013
  2. ARADOIS [Concomitant]
     Active Substance: LOSARTAN POTASSIUM
     Indication: PRODUCT USED FOR UNKNOWN INDICATION
     Dosage: 1 DF, DAILY
     Route: 065
  3. EXELON [Suspect]
     Active Substance: RIVASTIGMINE TARTRATE
     Indication: DEMENTIA ALZHEIMER^S TYPE
     Dosage: 1 DF, BID (1 CAPSULE IN THE MORNING AND 1 CAPSULE AT NIGHT)
     Route: 065
  4. LOSARTAN [Concomitant]
     Active Substance: LOSARTAN
     Indication: HYPERTENSION
     Dosage: 1 DF, DAILY
     Route: 065
     Dates: start: 2013

REACTIONS (13)
  - Cerebrovascular accident [Unknown]
  - Heart rate increased [Unknown]
  - Speech disorder [Unknown]
  - Choking [Not Recovered/Not Resolved]
  - Cardiac arrest [Fatal]
  - Blindness [Unknown]
  - Asthenia [Unknown]
  - Weight decreased [Unknown]
  - Respiratory failure [Fatal]
  - Cerebral infarction [Recovered/Resolved with Sequelae]
  - Gait disturbance [Unknown]
  - Reading disorder [Unknown]
  - Dysphagia [Recovering/Resolving]

NARRATIVE: CASE EVENT DATE: 201312
